FAERS Safety Report 8573730 (Version 3)
Quarter: 2013Q1

REPORT INFORMATION
  Report Type: Spontaneous
  Country: US (occurrence: US)
  Receive Date: 20120522
  Receipt Date: 20130222
  Transmission Date: 20140127
  Serious: Yes (Other)
  Sender: FDA-Public Use
  Company Number: US-ROCHE-1040766

PATIENT
  Sex: Male
  Weight: 90.8 kg

DRUGS (3)
  1. ACCUTANE [Suspect]
     Indication: ACNE
     Route: 065
     Dates: start: 199201, end: 199208
  2. ACCUTANE [Suspect]
     Route: 065
     Dates: start: 199407, end: 199410
  3. ACCUTANE [Suspect]
     Route: 065
     Dates: end: 1996

REACTIONS (6)
  - Colitis ulcerative [Unknown]
  - Inflammatory bowel disease [Unknown]
  - Irritable bowel syndrome [Unknown]
  - Gallbladder disorder [Unknown]
  - Depression [Unknown]
  - Suicidal ideation [Unknown]
